FAERS Safety Report 5178241-8 (Version None)
Quarter: 2006Q4

REPORT INFORMATION
  Report Type: 
  Country: None (occurrence: None)
  Receive Date: 20061218
  Receipt Date: 20060807
  Transmission Date: 20070319
  Serious: No
  Sender: FDA-Public Use
  Company Number: US-AMGEN-KDL189323

PATIENT
  Sex: Female

DRUGS (1)
  1. ENBREL [Suspect]
     Indication: DRUG USE FOR UNKNOWN INDICATION
     Route: 058
     Dates: start: 20060515

REACTIONS (5)
  - DRY EYE [None]
  - DRY SKIN [None]
  - HEADACHE [None]
  - OCULAR HYPERAEMIA [None]
  - PRURITUS [None]
